FAERS Safety Report 21809282 (Version 1)
Quarter: 2023Q1

REPORT INFORMATION
  Report Type: Spontaneous
  Country: IR (occurrence: IR)
  Receive Date: 20230103
  Receipt Date: 20230103
  Transmission Date: 20230417
  Serious: Yes (Death, Hospitalization, Other)
  Sender: FDA-Public Use
  Company Number: IR-SUN PHARMACEUTICAL INDUSTRIES LTD-2022R1-371309

PATIENT
  Age: 40 Year
  Sex: Female

DRUGS (1)
  1. AMPHOTERICIN B [Suspect]
     Active Substance: AMPHOTERICIN B
     Indication: Mucormycosis
     Dosage: 5 KILOGRAM, QD
     Route: 042

REACTIONS (4)
  - Haemodynamic instability [Fatal]
  - Respiratory failure [Fatal]
  - Condition aggravated [Fatal]
  - Therapy non-responder [Unknown]
